FAERS Safety Report 17959998 (Version 1)
Quarter: 2020Q2

REPORT INFORMATION
  Report Type: Report from Study
  Country: US (occurrence: US)
  Receive Date: 20200629
  Receipt Date: 20200629
  Transmission Date: 20200714
  Serious: Yes (Hospitalization, Other)
  Sender: FDA-Public Use
  Company Number: US-BAUSCH-BL-2020-018033

PATIENT
  Age: 97 Year
  Sex: Male

DRUGS (22)
  1. PEPCID [Concomitant]
     Active Substance: FAMOTIDINE
     Indication: PRODUCT USED FOR UNKNOWN INDICATION
     Dosage: AT BEDTIME
     Route: 048
  2. ARMOUR THYROID [Concomitant]
     Active Substance: THYROID, PORCINE
     Indication: PRODUCT USED FOR UNKNOWN INDICATION
     Dosage: TO BE TAKEN 60 MG (1 TAB) BY MOUTH DAILY
     Route: 048
  3. MIRALAX [Concomitant]
     Active Substance: POLYETHYLENE GLYCOL 3350
     Indication: PRODUCT USED FOR UNKNOWN INDICATION
     Dosage: PACK
     Route: 048
  4. LASIX [Concomitant]
     Active Substance: FUROSEMIDE
     Indication: PRODUCT USED FOR UNKNOWN INDICATION
     Route: 048
  5. GLYCOLAX [Concomitant]
     Active Substance: POLYETHYLENE GLYCOL 3350
     Indication: PRODUCT USED FOR UNKNOWN INDICATION
     Dosage: PACK
     Route: 048
  6. XIFAXAN [Suspect]
     Active Substance: RIFAXIMIN
     Indication: HEPATIC ENCEPHALOPATHY
     Route: 048
  7. ATARAX [Concomitant]
     Active Substance: HYDROXYZINE HYDROCHLORIDE
     Indication: PRODUCT USED FOR UNKNOWN INDICATION
     Dosage: AS NEEDED
     Route: 048
  8. DULERA [Concomitant]
     Active Substance: FORMOTEROL FUMARATE DIHYDRATE\MOMETASONE FUROATE
     Indication: WHEEZING
     Dosage: 200-5 MCG, HYDROFLUOROALKANE (HFA) ACTUATION INHALER, TO USE 2 PUFFS TWICE DAILY AS NEEDED
  9. DULCOLAX NOS [Concomitant]
     Active Substance: BISACODYL OR DOCUSATE SODIUM
     Indication: PRODUCT USED FOR UNKNOWN INDICATION
     Dosage: AS NEEDED
     Route: 048
  10. NEOMYCIN/POLYMYXIN B/DEXAMETHASONE [Concomitant]
     Indication: PRODUCT USED FOR UNKNOWN INDICATION
     Dosage: 3.5/10000/0.1 SUSPENSION, 1 DROP EVERY FOUR HOURS
  11. METANX [Concomitant]
     Active Substance: LEVOMEFOLATE CALCIUM\METHYLCOBALAMIN\PYRIDOXAL PHOSPHATE ANHYDROUS
     Indication: PRODUCT USED FOR UNKNOWN INDICATION
     Dosage: 3-90.314-2-35 MG, TO BE TAKEN 1 CAPSULE BY MOUTH 2 TIMES DAILY
     Route: 048
  12. BERBERINE COMPLEX [Concomitant]
     Indication: PRODUCT USED FOR UNKNOWN INDICATION
     Dosage: 200/200/50 MG
     Route: 048
  13. CHOLECALCIFEROL [Concomitant]
     Active Substance: CHOLECALCIFEROL
     Indication: PRODUCT USED FOR UNKNOWN INDICATION
     Dosage: NAT-RUL VITAMIN D, TO BE TAKEN 1000 UNITS BY MOUTH DAILY?STRENGTH: 2000 UNITS
     Route: 048
  14. ENULOSE [Concomitant]
     Active Substance: LACTULOSE
     Indication: PRODUCT USED FOR UNKNOWN INDICATION
     Dosage: 10GM/15ML, TO BE TAKEN AT A DOSAGE OF 30 ML BY MOUTH THREE TIMES DAILY, TITRATE FOR 3 BM/DAY
     Route: 048
  15. MICOTIN [Concomitant]
     Indication: CELLULITIS
     Route: 061
  16. KLOR-CON [Concomitant]
     Active Substance: POTASSIUM CHLORIDE
     Indication: PRODUCT USED FOR UNKNOWN INDICATION
     Dosage: CONTROLLED RELEASE TABLET
     Route: 048
  17. MULTIPLE VITAMIN [Concomitant]
     Active Substance: VITAMINS
     Indication: PRODUCT USED FOR UNKNOWN INDICATION
     Dosage: TO BE TAKEN BY MOUTH DAILY
     Route: 048
  18. K-TAB [Concomitant]
     Active Substance: POTASSIUM CHLORIDE
     Indication: PRODUCT USED FOR UNKNOWN INDICATION
     Dosage: CONTROLLED RELEASE TABLET
     Route: 048
  19. ZAROXOLYN [Concomitant]
     Active Substance: METOLAZONE
     Indication: PRODUCT USED FOR UNKNOWN INDICATION
     Dosage: EVERY MONDAY, WEDNESDAY AND FRIDAY
     Route: 048
  20. MICOTIN [Concomitant]
     Indication: INTERTRIGO
  21. TYLENOL [Concomitant]
     Active Substance: ACETAMINOPHEN
     Indication: ARTHRALGIA
     Dosage: AS NEEDED
     Route: 048
  22. COENZYME Q10 [Concomitant]
     Active Substance: UBIDECARENONE
     Indication: PRODUCT USED FOR UNKNOWN INDICATION
     Dosage: TO BE TAKEN BY MOUTH DAILY
     Route: 048

REACTIONS (52)
  - Sepsis [Not Recovered/Not Resolved]
  - Cardiac failure congestive [Not Recovered/Not Resolved]
  - Troponin increased [Recovered/Resolved]
  - Hyponatraemia [Unknown]
  - Urinary incontinence [Unknown]
  - Bundle branch block left [Not Recovered/Not Resolved]
  - Acute respiratory failure [Not Recovered/Not Resolved]
  - Mitral valve incompetence [Not Recovered/Not Resolved]
  - Hypothyroidism [Not Recovered/Not Resolved]
  - Atrial fibrillation [Recovered/Resolved]
  - Hepatic cirrhosis [Unknown]
  - Clostridium difficile infection [Not Recovered/Not Resolved]
  - Pulmonary hypertension [Not Recovered/Not Resolved]
  - Arthralgia [Unknown]
  - Renal disorder [Unknown]
  - Dermatitis [Not Recovered/Not Resolved]
  - Rash [Unknown]
  - Renal failure [Not Recovered/Not Resolved]
  - Chronic kidney disease [Not Recovered/Not Resolved]
  - Disease complication [Unknown]
  - Subdural haematoma [Not Recovered/Not Resolved]
  - Symbolic dysfunction [Unknown]
  - Pelvic pain [Unknown]
  - Dysphagia [Unknown]
  - Skin ulcer [Unknown]
  - Pruritus [Unknown]
  - Subdural haemorrhage [Unknown]
  - Acute kidney injury [Not Recovered/Not Resolved]
  - Cardiac failure acute [Not Recovered/Not Resolved]
  - Pelvic fracture [Not Recovered/Not Resolved]
  - Skin disorder [Unknown]
  - Blood osmolarity decreased [Unknown]
  - Skin abrasion [Unknown]
  - Anaemia [Unknown]
  - Constipation [Unknown]
  - Oedema peripheral [Not Recovered/Not Resolved]
  - Peroneal nerve palsy [Unknown]
  - Cardiorenal syndrome [Not Recovered/Not Resolved]
  - Bacterial disease carrier [Not Recovered/Not Resolved]
  - Localised oedema [Unknown]
  - Ureteral disorder [Unknown]
  - Pyuria [Not Recovered/Not Resolved]
  - Pneumonia [Not Recovered/Not Resolved]
  - Ischaemic cardiomyopathy [Not Recovered/Not Resolved]
  - Fall [Recovered/Resolved]
  - Tinea cruris [Unknown]
  - Essential hypertension [Not Recovered/Not Resolved]
  - Type 2 diabetes mellitus [Unknown]
  - Cryptogenic cirrhosis [Not Recovered/Not Resolved]
  - Cardiomegaly [Unknown]
  - Gait disturbance [Unknown]
  - Muscular weakness [Unknown]

NARRATIVE: CASE EVENT DATE: 20170326
